FAERS Safety Report 9417068 (Version 1)
Quarter: 2013Q3

REPORT INFORMATION
  Report Type: Spontaneous
  Country: CA (occurrence: CA)
  Receive Date: 20130724
  Receipt Date: 20130724
  Transmission Date: 20140515
  Serious: Yes (Hospitalization)
  Sender: FDA-Public Use
  Company Number: CA-JNJFOC-20120521411

PATIENT
  Age: 70 Year
  Sex: Female
  Weight: 57 kg

DRUGS (11)
  1. REMICADE [Suspect]
     Indication: RHEUMATOID ARTHRITIS
     Dosage: INDUCTION DOSES AT 0, 2, 6 WEEKS
     Route: 042
     Dates: start: 20100515
  2. REMICADE [Suspect]
     Indication: RHEUMATOID ARTHRITIS
     Route: 042
     Dates: start: 201109, end: 20110914
  3. REMICADE [Suspect]
     Indication: RHEUMATOID ARTHRITIS
     Route: 042
     Dates: start: 201006
  4. REMICADE [Suspect]
     Indication: PSORIATIC ARTHROPATHY
     Route: 042
     Dates: start: 201006
  5. REMICADE [Suspect]
     Indication: PSORIATIC ARTHROPATHY
     Route: 042
     Dates: start: 201109, end: 20110914
  6. REMICADE [Suspect]
     Indication: PSORIATIC ARTHROPATHY
     Dosage: INDUCTION DOSES AT 0, 2, 6 WEEKS
     Route: 042
     Dates: start: 20100515
  7. PLAQUENIL [Concomitant]
     Indication: RHEUMATOID ARTHRITIS
     Route: 065
  8. MTX [Concomitant]
     Indication: RHEUMATOID ARTHRITIS
     Route: 065
  9. PREDNISONE [Concomitant]
     Indication: RHEUMATOID ARTHRITIS
     Route: 065
  10. VITAMIN D [Concomitant]
     Route: 065
  11. FOLIC ACID [Concomitant]
     Route: 065

REACTIONS (3)
  - Sepsis [Recovered/Resolved]
  - Cytomegalovirus infection [Recovered/Resolved]
  - Colitis ischaemic [Recovered/Resolved]
